FAERS Safety Report 14225703 (Version 1)
Quarter: 2017Q4

REPORT INFORMATION
  Report Type: Spontaneous
  Country: US (occurrence: None)
  Receive Date: 20171123
  Receipt Date: 20171123
  Transmission Date: 20180321
  Serious: Yes (Other)
  Sender: FDA-Public Use
  Company Number: None

PATIENT
  Sex: Female

DRUGS (1)
  1. SILDENAFIL 20MG AUROBINDO [Suspect]
     Active Substance: SILDENAFIL
     Indication: PULMONARY ARTERIAL HYPERTENSION
     Route: 048
     Dates: start: 20161206

REACTIONS (5)
  - Blood urea abnormal [None]
  - Renal disorder [None]
  - Blood creatinine decreased [None]
  - Eye swelling [None]
  - Micturition frequency decreased [None]
